FAERS Safety Report 8841356 (Version 1)
Quarter: 2012Q4

REPORT INFORMATION
  Report Type: 
  Country: JP (occurrence: JP)
  Receive Date: 20121015
  Receipt Date: 20121015
  Transmission Date: 20130627
  Serious: Yes (Death)
  Sender: FDA-Public Use
  Company Number: JP-PFIZER INC-2012255426

PATIENT
  Sex: Male

DRUGS (3)
  1. SOLANAX [Suspect]
     Dosage: 24 mg, UNK
  2. DEPAS [Suspect]
     Dosage: UNK
  3. ROHYPNOL [Suspect]
     Dosage: UNK

REACTIONS (2)
  - Death [Fatal]
  - Overdose [Fatal]
